FAERS Safety Report 25314382 (Version 1)
Quarter: 2025Q2

REPORT INFORMATION
  Report Type: Spontaneous
  Country: KR (occurrence: KR)
  Receive Date: 20250514
  Receipt Date: 20250514
  Transmission Date: 20250716
  Serious: Yes (Death)
  Sender: PFIZER
  Company Number: KR-PFIZER INC-202500099995

PATIENT
  Age: 73 Year
  Sex: Male

DRUGS (2)
  1. VFEND [Interacting]
     Active Substance: VORICONAZOLE
     Indication: Bronchopulmonary aspergillosis
     Dosage: 360 MG, 2X/DAY
     Dates: start: 20230308, end: 20230322
  2. RIVAROXABAN [Interacting]
     Active Substance: RIVAROXABAN
     Dates: start: 20230302, end: 20230322

REACTIONS (3)
  - Hepatic enzyme increased [Fatal]
  - Blood bilirubin increased [Fatal]
  - Drug interaction [Fatal]

NARRATIVE: CASE EVENT DATE: 20230308
